FAERS Safety Report 13654370 (Version 2)
Quarter: 2017Q3

REPORT INFORMATION
  Report Type: Spontaneous
  Country: IT (occurrence: IT)
  Receive Date: 20170615
  Receipt Date: 20170705
  Transmission Date: 20171127
  Serious: Yes (Other)
  Sender: FDA-Public Use
  Company Number: IT-ROCHE-1949420

PATIENT
  Age: 24 Year
  Sex: Male

DRUGS (3)
  1. DELORAZEPAM [Suspect]
     Active Substance: DELORAZEPAM
     Indication: PRODUCT USED FOR UNKNOWN INDICATION
     Route: 048
     Dates: start: 20160401, end: 20160401
  2. RIVOTRIL [Suspect]
     Active Substance: CLONAZEPAM
     Indication: PRODUCT USED FOR UNKNOWN INDICATION
     Dosage: 2.5 MG/ML SOLUTION, 10 ML BOTTLE
     Route: 048
     Dates: start: 20160401, end: 20160401
  3. RISPERDAL [Suspect]
     Active Substance: RISPERIDONE
     Indication: PRODUCT USED FOR UNKNOWN INDICATION
     Route: 048
     Dates: start: 20160401, end: 20160401

REACTIONS (2)
  - Sopor [Recovering/Resolving]
  - Drug abuse [Unknown]

NARRATIVE: CASE EVENT DATE: 20160402
